FAERS Safety Report 7141073-5 (Version None)
Quarter: 2010Q4

REPORT INFORMATION
  Report Type: 
  Country: None (occurrence: None)
  Receive Date: 20101122
  Receipt Date: 20101108
  Transmission Date: 20110411
  Serious: Yes (Other)
  Sender: FDA-Public Use
  Company Number: MPS1-1000368

PATIENT
  Age: 7 Year
  Sex: Male

DRUGS (2)
  1. ALDURAZYME [Suspect]
     Indication: MUCOPOLYSACCHARIDOSIS I
     Dosage: 17.4 MG, QW, INTRAVENOUS
     Route: 042
     Dates: start: 20060612
  2. ANALGESICS [Concomitant]

REACTIONS (3)
  - CARPAL TUNNEL SYNDROME [None]
  - PARAESTHESIA [None]
  - TENOSYNOVITIS [None]
